FAERS Safety Report 9375098 (Version 1)
Quarter: 2013Q2

REPORT INFORMATION
  Report Type: Spontaneous
  Country: US (occurrence: US)
  Receive Date: 20130628
  Receipt Date: 20130628
  Transmission Date: 20140414
  Serious: No
  Sender: FDA-Public Use
  Company Number: US-PFIZER INC-2013190147

PATIENT
  Age: 63 Year
  Sex: Female

DRUGS (5)
  1. BENZYLPENICILLIN POTASSIUM [Suspect]
  2. SULFADIAZINE SILVER [Suspect]
  3. HYDROXYCHLOROQUINE [Suspect]
  4. NITROFURANTOIN [Suspect]
  5. ASPIRIN [Suspect]

REACTIONS (1)
  - Drug hypersensitivity [Unknown]
